FAERS Safety Report 13934339 (Version 1)
Quarter: 2017Q3

REPORT INFORMATION
  Report Type: Spontaneous
  Country: US (occurrence: US)
  Receive Date: 20170905
  Receipt Date: 20170905
  Transmission Date: 20171127
  Serious: No
  Sender: FDA-Public Use
  Company Number: PHHY2017US126831

PATIENT
  Age: 87 Year
  Sex: Female

DRUGS (2)
  1. ODOMZO [Suspect]
     Active Substance: SONIDEGIB
     Indication: PRODUCT USED FOR UNKNOWN INDICATION
     Route: 065
  2. ODOMZO [Suspect]
     Active Substance: SONIDEGIB
     Dosage: UNK
     Route: 065

REACTIONS (1)
  - Palpitations [Recovered/Resolved]
